FAERS Safety Report 19914066 (Version 1)
Quarter: 2021Q4

REPORT INFORMATION
  Report Type: Report from Study
  Country: US (occurrence: US)
  Receive Date: 20211004
  Receipt Date: 20211004
  Transmission Date: 20220303
  Serious: Yes (Other)
  Sender: FDA-Public Use
  Company Number: US-ASTELLAS-2021US036837

PATIENT
  Age: 84 Year
  Sex: Male

DRUGS (2)
  1. ENFORTUMAB VEDOTIN [Suspect]
     Active Substance: ENFORTUMAB VEDOTIN
     Indication: Transitional cell carcinoma
     Dosage: 1.25 MG/KG, CYCLIC (DAYS 1,8, 15 Q28D)
     Route: 042
     Dates: start: 20201105, end: 20210115
  2. ENFORTUMAB VEDOTIN [Suspect]
     Active Substance: ENFORTUMAB VEDOTIN
     Dosage: 1.0 MG/KG, CYCLIC (D1, 8, 15 Q28D)
     Route: 042
     Dates: start: 20210205, end: 20210618

REACTIONS (3)
  - Neutropenia [Recovered/Resolved]
  - Neuropathy peripheral [Not Recovered/Not Resolved]
  - Rash [Recovered/Resolved]

NARRATIVE: CASE EVENT DATE: 20210115
